FAERS Safety Report 8001325-3 (Version None)
Quarter: 2011Q4

REPORT INFORMATION
  Report Type: 
  Country: None (occurrence: None)
  Receive Date: 20111222
  Receipt Date: 20111213
  Transmission Date: 20120403
  Serious: Yes (Hospitalization)
  Sender: FDA-Public Use
  Company Number: US-UCBSA-047722

PATIENT
  Age: 50 Year
  Sex: Female
  Weight: 73 kg

DRUGS (13)
  1. FOLIC ACID [Concomitant]
     Indication: SUPPLEMENTATION THERAPY
     Route: 048
     Dates: start: 20090501
  2. ATIVAN [Concomitant]
     Indication: ANXIETY
     Dosage: 0.5 MG TWICE DAILY AS NEEDED
     Route: 048
     Dates: start: 20110908
  3. HEPARIN LOCK-FLUSH [Concomitant]
     Indication: INDWELLING CATHETER MANAGEMENT
     Dosage: 100 UNITS AS NEEDED
     Route: 042
     Dates: start: 20091201
  4. DITROPAN [Concomitant]
     Indication: BLADDER SPASM
     Route: 048
     Dates: start: 20110601
  5. CIMZIA [Suspect]
     Indication: CROHN'S DISEASE
     Route: 058
     Dates: start: 20091109, end: 20110101
  6. METHOTREXATE [Suspect]
     Indication: CROHN'S DISEASE
     Route: 058
     Dates: start: 20090501
  7. CLONAZEPAM [Concomitant]
     Indication: ANXIETY
     Dosage: 0.5-1.0 MG TWICE DAILY AS NEEDED
     Route: 048
     Dates: start: 20100425
  8. AMITRIPTYLINE HCL [Concomitant]
     Indication: DEPRESSION
     Dosage: 25 MG IN THE MORNING AND 50 MG IN THE EVENING
     Route: 048
     Dates: start: 20090101
  9. CITALOPRAM HYDROBROMIDE [Concomitant]
     Indication: DEPRESSION
     Route: 048
     Dates: start: 20110426
  10. FENTANYL-100 [Concomitant]
     Indication: PAIN
     Dates: start: 20100527
  11. LOPERAMIDE HCL [Concomitant]
     Indication: DIARRHOEA
     Route: 048
     Dates: start: 20090101
  12. CYANOCOBALAMIN [Concomitant]
     Indication: SUPPLEMENTATION THERAPY
     Route: 030
     Dates: start: 20070101
  13. ESOMEPRAZOLE MAGNESIUM [Concomitant]
     Indication: GASTROOESOPHAGEAL REFLUX PROPHYLAXIS
     Dates: start: 20110812

REACTIONS (1)
  - DEVICE RELATED INFECTION [None]
